FAERS Safety Report 23903075 (Version 1)
Quarter: 2024Q2

REPORT INFORMATION
  Report Type: Spontaneous
  Country: US (occurrence: US)
  Receive Date: 20240527
  Receipt Date: 20240527
  Transmission Date: 20240716
  Serious: No
  Sender: FDA-Public Use
  Company Number: US-GSKCCFUS-Case-02013259_AE-111749

PATIENT
  Sex: Female

DRUGS (1)
  1. ARNUITY ELLIPTA [Suspect]
     Active Substance: FLUTICASONE FUROATE
     Indication: Cough
     Dosage: UNK

REACTIONS (3)
  - Product use in unapproved indication [Unknown]
  - Product prescribing error [Unknown]
  - Drug ineffective for unapproved indication [Unknown]
